FAERS Safety Report 7867762-2 (Version None)
Quarter: 2011Q4

REPORT INFORMATION
  Report Type: 
  Country: None (occurrence: None)
  Receive Date: 20111028
  Receipt Date: 20111021
  Transmission Date: 20120403
  Serious: Yes (Other)
  Sender: FDA-Public Use
  Company Number: US-ABBOTT-11P-163-0706276-00

PATIENT
  Sex: Male
  Weight: 2.724 kg

DRUGS (1)
  1. LUPRON DEPOT [Suspect]
     Indication: MATERNAL EXPOSURE DURING PREGNANCY
     Route: 064

REACTIONS (2)
  - PNEUMOTHORAX [None]
  - MATERNAL EXPOSURE DURING PREGNANCY [None]
